FAERS Safety Report 7772295-8 (Version None)
Quarter: 2011Q3

REPORT INFORMATION
  Report Type: 
  Country: None (occurrence: None)
  Receive Date: 20110922
  Receipt Date: 20110711
  Transmission Date: 20111222
  Serious: No
  Sender: FDA-Public Use
  Company Number: US-ASTRAZENECA-2011SE41479

PATIENT
  Age: 28 Year
  Sex: Female

DRUGS (2)
  1. SEROQUEL [Suspect]
     Indication: MAJOR DEPRESSION
     Route: 048
     Dates: end: 20110701
  2. PROZAC [Concomitant]
     Indication: MAJOR DEPRESSION

REACTIONS (3)
  - HYPOAESTHESIA [None]
  - PARAESTHESIA [None]
  - FEELING ABNORMAL [None]
